FAERS Safety Report 4591498-7 (Version None)
Quarter: 2005Q1

REPORT INFORMATION
  Report Type: 
  Country: None (occurrence: None)
  Receive Date: 20050222
  Receipt Date: 20050207
  Transmission Date: 20050727
  Serious: Yes (Hospitalization)
  Sender: FDA-Public Use
  Company Number: 2005026444

PATIENT
  Age: 85 Year
  Sex: Female

DRUGS (5)
  1. AMLODIPINE [Suspect]
     Indication: HYPERTENSION
     Dosage: 5 MG 95 MG, 1 IN 1 D), ORAL
     Route: 048
  2. HYDROXYZIN HYDROCHLORIDE (IM) (HYDROXYZINE HYDROCHLORIDE) (HYDROXYZINE [Suspect]
     Indication: ILL-DEFINED DISORDER
     Dosage: 12.5 MG (25 MG, 1 IN 1 D), ORAL
     Route: 048
  3. POTASSIUM CHLORIDE [Suspect]
     Indication: ILL-DEFINED DISORDER
     Dosage: 1 DOSE FORM (1 IN 1 D), ORAL
     Route: 048
  4. ACENOCOUMAROL (ACENOCOUMAROL [Suspect]
     Indication: PHLEBITIS
     Dosage: 4 MG (4 MG, 1 IN 1 D), ORAL
     Route: 048
  5. AMIODARONE HCL [Suspect]
     Indication: ATRIAL FLUTTER
     Dosage: (200 MG,UNKNOWN), ORAL
     Route: 048
     Dates: start: 19980601, end: 20041119

REACTIONS (4)
  - BRONCHITIS [None]
  - DYSPNOEA [None]
  - LUNG NEOPLASM [None]
  - WHEEZING [None]
